FAERS Safety Report 15880153 (Version 1)
Quarter: 2019Q1

REPORT INFORMATION
  Report Type: Spontaneous
  Country: JP (occurrence: JP)
  Receive Date: 20190128
  Receipt Date: 20190128
  Transmission Date: 20190417
  Serious: Yes (Other)
  Sender: FDA-Public Use
  Company Number: PHJP2019JP000917

PATIENT
  Sex: Female

DRUGS (4)
  1. RITALIN [Suspect]
     Active Substance: METHYLPHENIDATE HYDROCHLORIDE
     Dosage: UNK
     Route: 045
  2. RITALIN [Suspect]
     Active Substance: METHYLPHENIDATE HYDROCHLORIDE
     Indication: NARCOLEPSY
     Dosage: UNK
     Route: 048
  3. RITALIN [Suspect]
     Active Substance: METHYLPHENIDATE HYDROCHLORIDE
     Dosage: UNK
     Route: 048
  4. EPHEDRINE. [Concomitant]
     Active Substance: EPHEDRINE
     Indication: PRODUCT USED FOR UNKNOWN INDICATION
     Dosage: UNK
     Route: 065

REACTIONS (15)
  - Listless [Unknown]
  - Hallucination, auditory [Unknown]
  - Withdrawal syndrome [Unknown]
  - Muscle disorder [Unknown]
  - Hallucination [Unknown]
  - Drug dependence [Unknown]
  - Speech disorder [Unknown]
  - Feeling of despair [Unknown]
  - Personality change [Unknown]
  - Incorrect route of product administration [Unknown]
  - Vomiting [Unknown]
  - Intentional overdose [Unknown]
  - Insomnia [Unknown]
  - Abnormal behaviour [Unknown]
  - Dysphagia [Unknown]
